FAERS Safety Report 12250640 (Version 2)
Quarter: 2017Q2

REPORT INFORMATION
  Report Type: Report from Study
  Country: None (occurrence: BR)
  Receive Date: 20160409
  Receipt Date: 20170508
  Transmission Date: 20170830
  Serious: Yes (Hospitalization, Other)
  Sender: FDA-Public Use
  Company Number: BR-ABBVIE-16K-020-1598538-00

PATIENT
  Age: 42 Year
  Sex: Male
  Weight: 85 kg

DRUGS (4)
  1. MELOXICAM. [Concomitant]
     Active Substance: MELOXICAM
     Indication: PAIN
     Dosage: ONE IN ONE AS REQUIRED
     Route: 048
  2. MAREVAN [Concomitant]
     Active Substance: WARFARIN SODIUM
     Indication: ANTICOAGULANT THERAPY
     Route: 048
     Dates: start: 201610
  3. HUMIRA [Suspect]
     Active Substance: ADALIMUMAB
     Indication: PSORIATIC ARTHROPATHY
     Route: 058
     Dates: start: 20130303
  4. TENOXICAM [Concomitant]
     Active Substance: TENOXICAM
     Indication: SPINAL PAIN
     Route: 048

REACTIONS (16)
  - Pain [Recovered/Resolved]
  - Frequent bowel movements [Recovered/Resolved]
  - Peripheral swelling [Recovered/Resolved]
  - Rash macular [Unknown]
  - Arthritis [Recovered/Resolved]
  - Weight increased [Recovering/Resolving]
  - Incorrect product storage [Unknown]
  - Abdominal pain [Recovered/Resolved]
  - Arthralgia [Not Recovered/Not Resolved]
  - Thrombosis [Recovering/Resolving]
  - Paralysis [Recovered/Resolved]
  - Skin exfoliation [Recovered/Resolved]
  - Spondylitis [Recovering/Resolving]
  - Sensitivity to weather change [Recovering/Resolving]
  - Rash macular [Recovering/Resolving]
  - Skin exfoliation [Unknown]

NARRATIVE: CASE EVENT DATE: 201410
